FAERS Safety Report 10346026 (Version 2)
Quarter: 2014Q3

REPORT INFORMATION
  Report Type: Spontaneous
  Country: CH (occurrence: CH)
  Receive Date: 20140728
  Receipt Date: 20140908
  Transmission Date: 20150326
  Serious: Yes (Hospitalization)
  Sender: FDA-Public Use
  Company Number: CH-TEVA-495608ISR

PATIENT
  Age: 59 Year
  Sex: Female
  Weight: 78 kg

DRUGS (16)
  1. COLISTIN [Interacting]
     Active Substance: COLISTIN
     Dosage: 9 MU DAILY; LOADING DOSE: 1X9 MILLION UNITS, MAINTENANCE: 3X3 MILLION UNITS PER DAY
     Route: 041
     Dates: start: 20140614, end: 20140617
  2. ALDACTONE [Interacting]
     Active Substance: SPIRONOLACTONE
     Indication: PULMONARY HYPERTENSION
     Dosage: 50 MILLIGRAM DAILY; LONGTERM THERAPY
     Route: 048
     Dates: end: 20140617
  3. MAGNESIOCARD [Concomitant]
     Active Substance: MAGNESIUM ASPARTATE HYDROCHLORIDE
     Route: 065
  4. OBRACIN [Suspect]
     Active Substance: TOBRAMYCIN
     Indication: PSEUDOMONAL SEPSIS
     Dosage: 530 MILLIGRAM DAILY;
     Route: 041
     Dates: start: 20140613, end: 20140613
  5. TOREM [Interacting]
     Active Substance: TORSEMIDE
     Indication: PULMONARY HYPERTENSION
     Dosage: 30 MILLIGRAM DAILY;
     Route: 065
     Dates: end: 20140617
  6. PRIVIGEN [Concomitant]
     Active Substance: HUMAN IMMUNOGLOBULIN G
     Dosage: LAST ADMINISTRATION BEFORE THE EVENT WAS -JAN-2014
     Route: 065
  7. FRAGMIN [Concomitant]
     Active Substance: DALTEPARIN SODIUM
     Route: 065
  8. CALCIMAGON [Concomitant]
     Active Substance: CALCIUM
     Route: 065
  9. DUROGESIC [Concomitant]
     Active Substance: FENTANYL
     Route: 065
  10. OBRACIN [Interacting]
     Active Substance: TOBRAMYCIN
     Dosage: 1060 MILLIGRAM DAILY;
     Route: 041
     Dates: start: 20140614, end: 20140614
  11. REMERON [Concomitant]
     Active Substance: MIRTAZAPINE
     Route: 065
  12. COLISTIN [Interacting]
     Active Substance: COLISTIN
     Indication: PSEUDOMONAL SEPSIS
     Dosage: 9 MU DAILY; LOADING DOSE
     Route: 041
     Dates: start: 20140613, end: 20140613
  13. SEROPRAM [Concomitant]
     Active Substance: CITALOPRAM HYDROBROMIDE
     Route: 065
  14. PANTOZOL [Concomitant]
     Active Substance: PANTOPRAZOLE SODIUM
     Route: 065
  15. TEMESTA [Concomitant]
     Active Substance: LORAZEPAM
     Route: 065
  16. OBRACIN [Interacting]
     Active Substance: TOBRAMYCIN
     Dosage: 200 MILLIGRAM DAILY; DOSE REDUCTION ACCORDING TDM
     Route: 041
     Dates: start: 201406, end: 201406

REACTIONS (8)
  - Overdose [Unknown]
  - Off label use [Unknown]
  - Renal failure acute [Recovering/Resolving]
  - Drug level increased [Unknown]
  - Tubulointerstitial nephritis [Unknown]
  - Hyperkalaemia [Recovered/Resolved]
  - Drug interaction [Unknown]
  - Drug level increased [Unknown]

NARRATIVE: CASE EVENT DATE: 20140613
